FAERS Safety Report 20254661 (Version 2)
Quarter: 2022Q1

REPORT INFORMATION
  Report Type: Report from Study
  Country: US (occurrence: US)
  Receive Date: 20211230
  Receipt Date: 20220114
  Transmission Date: 20220424
  Serious: No
  Sender: FDA-Public Use
  Company Number: US-REGENERON PHARMACEUTICALS, INC.-2021-117555

PATIENT
  Age: 73 Year
  Sex: Female

DRUGS (1)
  1. CASIRIVIMAB\IMDEVIMAB [Suspect]
     Active Substance: CASIRIVIMAB\IMDEVIMAB
     Indication: COVID-19 treatment
     Dosage: 1200 MG OF CASIRIVIMAB
     Route: 065
     Dates: start: 20211217, end: 20211217

REACTIONS (2)
  - Incorrect dose administered [Unknown]
  - Single component of a two-component product administered [Unknown]

NARRATIVE: CASE EVENT DATE: 20211217
